FAERS Safety Report 7148784-6 (Version None)
Quarter: 2010Q4

REPORT INFORMATION
  Report Type: 
  Country: None (occurrence: None)
  Receive Date: 20101123
  Receipt Date: 20101115
  Transmission Date: 20110411
  Serious: Yes (Hospitalization)
  Sender: FDA-Public Use
  Company Number: DSU-2010-06247

PATIENT
  Age: 57 Year
  Sex: Female
  Weight: 113.3993 kg

DRUGS (12)
  1. WELCHOL [Suspect]
     Indication: DIABETES MELLITUS
     Dosage: 1250 MG (625 MG,BID)PER ORAL
     Route: 048
     Dates: start: 20091101
  2. WELCHOL [Suspect]
     Indication: HYPERLIPIDAEMIA
     Dosage: 1250 MG (625 MG,BID)PER ORAL
     Route: 048
     Dates: start: 20091101
  3. PRANDIN (DEFLAZACORT) (DEFLAZACORT) [Concomitant]
  4. GLUCOPHAGE XR (METFORMIN HYDROCHLORIDE) (METFORMIN HYDROCHLORIDE) [Concomitant]
  5. LISINOPRIL [Concomitant]
  6. DILTIAZEM [Concomitant]
  7. LORATADINE (LORATADINE) (LORATADINE) [Concomitant]
  8. SINGULAIR (MONTELUKAST) (MONTELUKAST) [Concomitant]
  9. XOPENEX (LEVOSALBUTAMOL) (LEVOSALBUTAMOL) [Concomitant]
  10. PRAVASTATIN [Concomitant]
  11. COQ10 (UBIDECARENONE) (UBIDECARENONE) [Concomitant]
  12. ASPIRIN [Concomitant]

REACTIONS (6)
  - BLOOD TRIGLYCERIDES INCREASED [None]
  - INAPPROPRIATE SCHEDULE OF DRUG ADMINISTRATION [None]
  - INCORRECT DOSE ADMINISTERED [None]
  - OESOPHAGEAL SPASM [None]
  - PROCEDURAL COMPLICATION [None]
  - WEIGHT DECREASED [None]
